FAERS Safety Report 9493811 (Version 3)
Quarter: 2013Q3

REPORT INFORMATION
  Report Type: Report from Study
  Country: BR (occurrence: BR)
  Receive Date: 20130902
  Receipt Date: 20130920
  Transmission Date: 20140515
  Serious: Yes (Death, Hospitalization)
  Sender: FDA-Public Use
  Company Number: BR-ROCHE-1269327

PATIENT
  Sex: Male
  Weight: 80 kg

DRUGS (4)
  1. XOLAIR [Suspect]
     Indication: CHRONIC OBSTRUCTIVE PULMONARY DISEASE
     Route: 058
     Dates: start: 201212
  2. XOLAIR [Suspect]
     Route: 065
     Dates: end: 201308
  3. SPIRIVA [Concomitant]
  4. SERETIDE [Concomitant]

REACTIONS (2)
  - Death [Fatal]
  - Pneumonia [Not Recovered/Not Resolved]
